FAERS Safety Report 13748620 (Version 2)
Quarter: 2024Q4

REPORT INFORMATION
  Report Type: Report from Study
  Country: DE (occurrence: DE)
  Receive Date: 20170713
  Receipt Date: 20241127
  Transmission Date: 20250115
  Serious: Yes (Other)
  Sender: ACCORD
  Company Number: DE-ACCORD-053334

PATIENT
  Age: 14 Year
  Sex: Male

DRUGS (2)
  1. METHOTREXATE SODIUM [Suspect]
     Active Substance: METHOTREXATE SODIUM
     Indication: Juvenile idiopathic arthritis
  2. ETANERCEPT [Suspect]
     Active Substance: ETANERCEPT
     Indication: Juvenile idiopathic arthritis

REACTIONS (2)
  - Ependymoma malignant [Recovered/Resolved with Sequelae]
  - Acute lymphocytic leukaemia [Unknown]

NARRATIVE: CASE EVENT DATE: 20120101
